FAERS Safety Report 9902888 (Version 2)
Quarter: 2014Q1

REPORT INFORMATION
  Report Type: Spontaneous
  Country: DE (occurrence: DE)
  Receive Date: 20140217
  Receipt Date: 20140228
  Transmission Date: 20141002
  Serious: Yes (Life-Threatening, Hospitalization)
  Sender: FDA-Public Use
  Company Number: PHHY2014DE018370

PATIENT
  Sex: Male

DRUGS (7)
  1. ULTIBRO BREEZHALER [Suspect]
     Indication: CHRONIC OBSTRUCTIVE PULMONARY DISEASE
     Dosage: 1 DF, QD
     Dates: start: 20140202
  2. THEOPHYLLINE [Suspect]
     Dosage: 1 DF, BID
  3. PREDNISOLON [Concomitant]
     Dosage: 1 DF, QD
     Route: 048
  4. RAMIPRIL [Concomitant]
     Dosage: 1 DF, QD
     Route: 048
  5. FUROSEMID//FUROSEMIDE [Concomitant]
     Dosage: 1 DF, QD
  6. EUPHYLONG [Concomitant]
     Dosage: 2.5 DF, QD
     Route: 048
  7. FORADIL [Concomitant]
     Indication: CHRONIC OBSTRUCTIVE PULMONARY DISEASE
     Dosage: UNK UKN, UNK

REACTIONS (1)
  - Grand mal convulsion [Unknown]
